FAERS Safety Report 5605573-9 (Version None)
Quarter: 2008Q1

REPORT INFORMATION
  Report Type: 
  Country: None (occurrence: None)
  Receive Date: 20080123
  Receipt Date: 20070115
  Transmission Date: 20080703
  Serious: Yes (Death, Hospitalization)
  Sender: FDA-Public Use
  Company Number: 2007BI025337

PATIENT
  Age: 45 Year
  Sex: Female
  Weight: 42 kg

DRUGS (6)
  1. TYSABRI [Suspect]
     Indication: MULTIPLE SCLEROSIS
     Dosage: ;QM;IV
     Route: 042
     Dates: start: 20071020, end: 20071122
  2. ATENOLOL [Concomitant]
  3. OXYBUTININ [Concomitant]
  4. DIAZEPAM [Concomitant]
  5. LEVONORGESTREL [Concomitant]
  6. FELODIPINE [Concomitant]

REACTIONS (7)
  - ASPIRATION [None]
  - CHOKING [None]
  - COGNITIVE DISORDER [None]
  - DEMYELINATION [None]
  - IMMOBILE [None]
  - MULTIPLE SCLEROSIS RELAPSE [None]
  - UNDERWEIGHT [None]
